FAERS Safety Report 7577441-7 (Version None)
Quarter: 2011Q2

REPORT INFORMATION
  Report Type: 
  Country: None (occurrence: None)
  Receive Date: 20110628
  Receipt Date: 20110114
  Transmission Date: 20111010
  Serious: Yes (Hospitalization, Other)
  Sender: FDA-Public Use
  Company Number: US-BAYER-201023676NA

PATIENT
  Age: 18 Year
  Sex: Female
  Weight: 50 kg

DRUGS (8)
  1. YAZ [Suspect]
     Indication: MENSTRUAL CYCLE MANAGEMENT
  2. IBUPROFEN [Concomitant]
     Dosage: 3 PER DAY
     Dates: start: 20080509, end: 20080510
  3. ADVIL LIQUI-GELS [Concomitant]
  4. ONE A DAY [Concomitant]
  5. NAPROXEN (ALEVE) [Concomitant]
  6. CONCERTA [Concomitant]
     Indication: ATTENTION DEFICIT/HYPERACTIVITY DISORDER
  7. MOTRIN [Concomitant]
  8. YAZ [Suspect]
     Indication: MENORRHAGIA
     Route: 048
     Dates: start: 20070801, end: 20080515

REACTIONS (13)
  - VENA CAVA THROMBOSIS [None]
  - GROIN PAIN [None]
  - OEDEMA PERIPHERAL [None]
  - VENOUS INSUFFICIENCY [None]
  - OEDEMA [None]
  - DEEP VEIN THROMBOSIS [None]
  - PLEURITIC PAIN [None]
  - ARTHRALGIA [None]
  - PULMONARY INFARCTION [None]
  - PAIN [None]
  - PULMONARY EMBOLISM [None]
  - PAIN IN EXTREMITY [None]
  - BACK PAIN [None]
